FAERS Safety Report 8248722-9 (Version None)
Quarter: 2012Q1

REPORT INFORMATION
  Report Type: 
  Country: None (occurrence: None)
  Receive Date: 20120331
  Receipt Date: 20120323
  Transmission Date: 20120608
  Serious: Yes (Hospitalization)
  Sender: FDA-Public Use
  Company Number: PHFR2011GB04591

PATIENT
  Sex: Female

DRUGS (4)
  1. CLOZARIL [Suspect]
     Indication: SCHIZOPHRENIA
     Dosage: 550 MG/ DAY
     Route: 048
     Dates: start: 20070914
  2. FLUOXETINE [Concomitant]
     Dosage: 60 MG, DAILY
     Route: 048
     Dates: start: 20110901
  3. CLOZARIL [Suspect]
     Dosage: 400 MG, DAILY
     Route: 048
  4. FLUOXETINE [Concomitant]
     Indication: DEPRESSION
     Dosage: 40 MG/ DAY
     Route: 048
     Dates: start: 20110714

REACTIONS (4)
  - SKIN INFECTION [None]
  - WHITE BLOOD CELL COUNT INCREASED [None]
  - NEUTROPHIL COUNT INCREASED [None]
  - LOWER RESPIRATORY TRACT INFECTION [None]
